FAERS Safety Report 13836634 (Version 1)
Quarter: 2017Q3

REPORT INFORMATION
  Report Type: Spontaneous
  Country: US (occurrence: US)
  Receive Date: 20170804
  Receipt Date: 20170804
  Transmission Date: 20171127
  Serious: No
  Sender: FDA-Public Use
  Company Number: US-ROCHE-1078126

PATIENT
  Age: 66 Year
  Sex: Female

DRUGS (4)
  1. MIACALCIN [Concomitant]
     Active Substance: CALCITONIN SALMON
  2. BONIVA [Suspect]
     Active Substance: IBANDRONATE SODIUM
     Indication: OSTEOPOROSIS POSTMENOPAUSAL
     Route: 048
  3. BONIVA [Suspect]
     Active Substance: IBANDRONATE SODIUM
     Indication: OSTEOPENIA
     Dosage: THERAPY RESTARTED
     Route: 065
  4. ACTONEL [Concomitant]
     Active Substance: RISEDRONATE SODIUM

REACTIONS (5)
  - Sensation of foreign body [Recovered/Resolved]
  - Arthritis [Not Recovered/Not Resolved]
  - Dysphagia [Not Recovered/Not Resolved]
  - Back pain [Not Recovered/Not Resolved]
  - Aphonia [Recovered/Resolved]
